FAERS Safety Report 7964102-5 (Version None)
Quarter: 2011Q4

REPORT INFORMATION
  Report Type: 
  Country: None (occurrence: None)
  Receive Date: 20111208
  Receipt Date: 20111128
  Transmission Date: 20120403
  Serious: Yes (Hospitalization)
  Sender: FDA-Public Use
  Company Number: JP-AMGEN-JPNCT2011026635

PATIENT
  Age: 69 Year
  Sex: Male
  Weight: 57 kg

DRUGS (18)
  1. PANITUMUMAB [Suspect]
     Dosage: 6 MG/KG, Q2WK
     Route: 041
     Dates: start: 20101012, end: 20101030
  2. LEUCOVORIN CALCIUM [Suspect]
     Indication: COLORECTAL CANCER
     Route: 041
     Dates: start: 20100727, end: 20110111
  3. CELECOXIB [Concomitant]
     Dosage: UNK
     Route: 048
  4. IRINOTECAN HCL [Suspect]
     Indication: COLORECTAL CANCER
     Route: 041
     Dates: start: 20110123, end: 20110308
  5. PROTECADIN [Concomitant]
     Dosage: UNK
     Route: 048
  6. EMEND [Concomitant]
     Dosage: UNK
     Route: 048
  7. HIRUDOID [Concomitant]
     Dosage: UNK
     Route: 062
  8. CLOBETASOL PROPIONATE [Concomitant]
     Dosage: UNK
     Route: 062
  9. PANITUMUMAB [Suspect]
     Dosage: 6 MG/KG, Q2WK
     Dates: start: 20101228, end: 20110308
  10. LEUCOVORIN CALCIUM [Suspect]
     Route: 041
     Dates: start: 20110123, end: 20110308
  11. FLUOROURACIL [Suspect]
     Indication: COLORECTAL CANCER
     Route: 041
     Dates: start: 20100727, end: 20110111
  12. SHAKUYAKUKANZOTO [Concomitant]
     Dosage: UNK
     Route: 048
  13. OXALIPLATIN [Suspect]
     Indication: COLORECTAL CANCER
     Route: 041
     Dates: start: 20100727, end: 20110111
  14. FLUOROURACIL [Suspect]
     Route: 041
     Dates: start: 20110123, end: 20110308
  15. PANITUMUMAB [Suspect]
     Indication: COLORECTAL CANCER
     Dosage: 6 MG/KG, Q2WK
     Route: 041
     Dates: start: 20100727, end: 20100914
  16. DECADRON [Suspect]
     Dosage: UNK
     Route: 042
  17. MUCOSTA [Concomitant]
     Dosage: UNK
     Route: 048
  18. RAMELTEON [Concomitant]
     Dosage: UNK
     Route: 042

REACTIONS (6)
  - HYPOKALAEMIA [None]
  - INFUSION RELATED REACTION [None]
  - HEPATIC ENCEPHALOPATHY [None]
  - STOMATITIS [None]
  - DERMATITIS ACNEIFORM [None]
  - PARONYCHIA [None]
